FAERS Safety Report 5988993-2 (Version None)
Quarter: 2008Q4

REPORT INFORMATION
  Report Type: 
  Country: None (occurrence: None)
  Receive Date: 20081210
  Receipt Date: 20081208
  Transmission Date: 20090506
  Serious: Yes (Other)
  Sender: FDA-Public Use
  Company Number: A0759666A

PATIENT
  Age: 78 Year
  Sex: Female
  Weight: 94 kg

DRUGS (5)
  1. CEFUROXIME [Suspect]
     Indication: URINARY TRACT INFECTION
     Dosage: 500MG TWICE PER DAY
     Route: 048
     Dates: start: 20081124, end: 20081204
  2. METFORMIN HCL [Concomitant]
     Dates: start: 20080501
  3. TRILEPTAL [Concomitant]
     Dates: start: 20080601
  4. SIFROL [Concomitant]
     Dates: start: 20070601
  5. RISPERIDONE [Concomitant]
     Dates: start: 20000101

REACTIONS (4)
  - AGGRESSION [None]
  - DRUG ADMINISTRATION ERROR [None]
  - DYSPHAGIA [None]
  - HYPOTENSION [None]
